FAERS Safety Report 5127289-8 (Version None)
Quarter: 2006Q4

REPORT INFORMATION
  Report Type: 
  Country: None (occurrence: None)
  Receive Date: 20061010
  Receipt Date: 20061002
  Transmission Date: 20070319
  Serious: Yes (Other)
  Sender: FDA-Public Use
  Company Number: B0440603A

PATIENT
  Age: 45 Year
  Sex: Female

DRUGS (7)
  1. VENTOLIN [Suspect]
     Indication: ASTHMA
     Dosage: INTRAVENOUS INFUSION
     Route: 042
  2. VENTOLIN [Suspect]
     Dosage: INHALED
     Route: 055
  3. PREDNISONE TAB [Concomitant]
  4. INTRAVENOUS FLUID(S) [Concomitant]
  5. OXYGEN [Concomitant]
  6. HYDROCORTISONE ACETATE [Concomitant]
  7. AMINPHYLLINE [Concomitant]

REACTIONS (3)
  - GLUCOSE TOLERANCE TEST NORMAL [None]
  - KETOACIDOSIS [None]
  - THERAPEUTIC RESPONSE DECREASED [None]
